FAERS Safety Report 7920459-2 (Version None)
Quarter: 2011Q4

REPORT INFORMATION
  Report Type: 
  Country: None (occurrence: None)
  Receive Date: 20111117
  Receipt Date: 20111109
  Transmission Date: 20120403
  Serious: No
  Sender: FDA-Public Use
  Company Number: PHEH2011US009108

PATIENT
  Sex: Male
  Weight: 61.224 kg

DRUGS (10)
  1. SYNTHROID [Concomitant]
     Dosage: 100 UG
  2. LANOXIN [Concomitant]
     Dosage: 0.125 MG
  3. PRILOSEC [Concomitant]
     Dosage: 20 MG
  4. VITAMIN D [Concomitant]
  5. COUMADIN [Concomitant]
     Dosage: 2 MG
  6. MULTI-VITAMINS [Concomitant]
  7. ATROVENT [Concomitant]
     Dosage: 17 UG
  8. TASIGNA [Suspect]
     Dosage: 200 MG, BID
     Route: 048
  9. TOPROL-XL [Concomitant]
     Dosage: 50 MG
  10. LIPITOR [Concomitant]
     Dosage: 20 MG

REACTIONS (3)
  - ANAEMIA [None]
  - CONSTIPATION [None]
  - FATIGUE [None]
